FAERS Safety Report 10738626 (Version 1)
Quarter: 2015Q1

REPORT INFORMATION
  Report Type: Spontaneous
  Country: US (occurrence: US)
  Receive Date: 20150126
  Receipt Date: 20150126
  Transmission Date: 20150721
  Serious: Yes (Hospitalization)
  Sender: FDA-Public Use
  Company Number: US-009507513-1501USA008391

PATIENT
  Sex: Male

DRUGS (3)
  1. EMEND [Suspect]
     Active Substance: APREPITANT
     Dosage: 80 MG, ONCE
     Route: 048
  2. EMEND [Suspect]
     Active Substance: APREPITANT
     Indication: PROPHYLAXIS OF NAUSEA AND VOMITING
     Dosage: 125 MG, ONCE
     Route: 048
  3. EMEND [Suspect]
     Active Substance: APREPITANT
     Dosage: 80 MG, ONCE
     Route: 048

REACTIONS (1)
  - Staphylococcal infection [Recovering/Resolving]
